FAERS Safety Report 9136477 (Version 1)
Quarter: 2013Q1

REPORT INFORMATION
  Report Type: Spontaneous
  Country: US (occurrence: US)
  Receive Date: 20130219
  Receipt Date: 20130219
  Transmission Date: 20140127
  Serious: No
  Sender: FDA-Public Use
  Company Number: US-BRISTOL-MYERS SQUIBB COMPANY-16839755

PATIENT
  Sex: Female

DRUGS (2)
  1. ABATACEPT SUBQ INJECTION 125MG/ML [Suspect]
     Dosage: ORENCIA,ABOUT 10 INJECTIONS,LAST INJ ON 01AUG12
     Route: 058
  2. METHOTREXATE [Concomitant]

REACTIONS (2)
  - Dyspnoea [Unknown]
  - Visual impairment [Unknown]
